FAERS Safety Report 8772900 (Version 1)
Quarter: 2012Q4

REPORT INFORMATION
  Report Type: 
  Country: US (occurrence: US)
  Receive Date: 20120907
  Receipt Date: 20120907
  Transmission Date: 20130627
  Serious: Yes (Other)
  Sender: FDA-Public Use
  Company Number: US-PAR PHARMACEUTICAL, INC-2012SCPR004606

PATIENT

DRUGS (8)
  1. BUPROPION HCL XL [Suspect]
     Indication: BIPOLAR DISORDER
     Dosage: 300 mg, Unknown
     Route: 065
  2. LITHIUM [Suspect]
     Indication: BIPOLAR DISORDER
     Dosage: 900 mg, / day
  3. LEVOTHYROXINE [Concomitant]
     Indication: PRODUCT USED FOR UNKNOWN INDICATION
     Dosage: 50 mcg, Unknown
     Route: 065
  4. PRENATAL VITAMINS [Concomitant]
     Indication: VITAMIN SUPPLEMENTATION
     Dosage: UNK, Unknown
     Route: 065
  5. CALCIUM [Concomitant]
     Indication: MINERAL SUPPLEMENTATION
     Dosage: UNK, Unknown
     Route: 065
  6. FISH OIL [Concomitant]
     Indication: PRODUCT USED FOR UNKNOWN INDICATION
     Dosage: UNK, Unknown
     Route: 065
  7. VITAMIN D [Concomitant]
     Indication: PRODUCT USED FOR UNKNOWN INDICATION
     Dosage: UNK, Unknown
     Route: 065
  8. IRON [Concomitant]
     Indication: PRODUCT USED FOR UNKNOWN INDICATION
     Dosage: UNK, Unknown
     Route: 065

REACTIONS (1)
  - Exposure during pregnancy [Unknown]
